FAERS Safety Report 20958820 (Version 2)
Quarter: 2022Q3

REPORT INFORMATION
  Report Type: Spontaneous
  Country: US (occurrence: US)
  Receive Date: 20220614
  Receipt Date: 20220712
  Transmission Date: 20221027
  Serious: Yes (Life-Threatening, Hospitalization, Disabling)
  Sender: FDA-Public Use
  Company Number: US-PFIZER INC-202200821425

PATIENT
  Age: 90 Year
  Sex: Female
  Weight: 45.81 kg

DRUGS (3)
  1. VANCOMYCIN HYDROCHLORIDE [Suspect]
     Active Substance: VANCOMYCIN HYDROCHLORIDE
     Indication: Osteoporosis
     Dosage: 500 MG, DAILY (500MG DAILY IV)
     Route: 042
     Dates: start: 20220520
  2. VANCOMYCIN HYDROCHLORIDE [Suspect]
     Active Substance: VANCOMYCIN HYDROCHLORIDE
     Dosage: UNK
  3. CEFEPIME [Concomitant]
     Active Substance: CEFEPIME HYDROCHLORIDE
     Dosage: 2 G, DAILY (2GRMS EVERY 24 HOUR, IV)
     Route: 042
     Dates: start: 20220520

REACTIONS (1)
  - Blood creatinine increased [Unknown]
